FAERS Safety Report 9169453 (Version 3)
Quarter: 2013Q2

REPORT INFORMATION
  Report Type: Spontaneous
  Country: IT (occurrence: IT)
  Receive Date: 20130318
  Receipt Date: 20130404
  Transmission Date: 20140414
  Serious: Yes (Hospitalization)
  Sender: FDA-Public Use
  Company Number: IT-TEVA-392176ISR

PATIENT
  Age: 90 Year
  Sex: Male

DRUGS (2)
  1. DICLOFENAC [Suspect]
     Indication: ARTHRALGIA
     Dosage: 1 DOSAGE FORMS DAILY;
     Route: 048
     Dates: start: 20130226, end: 20130304
  2. CO EFFERALGAN [Suspect]
     Indication: ARTHRALGIA
     Dosage: 2 DOSAGE FORMS DAILY;
     Route: 048
     Dates: start: 20130226, end: 20130304

REACTIONS (5)
  - Mallory-Weiss syndrome [Recovered/Resolved]
  - Hiatus hernia [Recovered/Resolved]
  - Gastritis [Recovered/Resolved]
  - Confusional state [Recovered/Resolved]
  - Clonus [Recovered/Resolved]
